FAERS Safety Report 22071817 (Version 1)
Quarter: 2023Q1

REPORT INFORMATION
  Report Type: Report from Study
  Country: US (occurrence: US)
  Receive Date: 20230307
  Receipt Date: 20230307
  Transmission Date: 20230418
  Serious: No
  Sender: FDA-Public Use
  Company Number: US-INCYTE CORPORATION-2023IN000893

PATIENT

DRUGS (2)
  1. JAKAFI [Suspect]
     Active Substance: RUXOLITINIB
     Indication: Myelofibrosis
     Dosage: 10MG AM/5MG PM, BID
     Route: 048
     Dates: start: 20221201, end: 20230126
  2. JAKAFI [Suspect]
     Active Substance: RUXOLITINIB
     Dosage: 10MG AM/5MG PM, 10MG 1 BY MOUTH IN AM -5MG 1 BY MOUTH IN PM
     Route: 048
     Dates: start: 20220601

REACTIONS (2)
  - Memory impairment [Unknown]
  - Product availability issue [Unknown]

NARRATIVE: CASE EVENT DATE: 20230126
